FAERS Safety Report 26165357 (Version 1)
Quarter: 2025Q4

REPORT INFORMATION
  Report Type: Spontaneous
  Country: US (occurrence: None)
  Receive Date: 20251216
  Receipt Date: 20251216
  Transmission Date: 20260118
  Serious: Yes (Other)
  Sender: FDA-CTU
  Company Number: None

PATIENT
  Age: 41 Year
  Sex: Female
  Weight: 96.75 kg

DRUGS (1)
  1. TIRZEPATIDE [Suspect]
     Active Substance: TIRZEPATIDE
     Indication: Obesity
     Dosage: 0.2 ML WEEKLY SUBCUTANEOUS
     Route: 058
     Dates: start: 20251123, end: 20251215

REACTIONS (2)
  - Dyspepsia [None]
  - Gallbladder disorder [None]

NARRATIVE: CASE EVENT DATE: 20251212
